FAERS Safety Report 5525075-8 (Version None)
Quarter: 2007Q4

REPORT INFORMATION
  Report Type: 
  Country: None (occurrence: None)
  Receive Date: 20071119
  Receipt Date: 20071108
  Transmission Date: 20080405
  Serious: Yes (Death, Hospitalization)
  Sender: FDA-Public Use
  Company Number: 2007-03750

PATIENT
  Age: 51 Year
  Sex: Male
  Weight: 76 kg

DRUGS (6)
  1. VELCADE [Suspect]
     Indication: MULTIPLE MYELOMA
     Dosage: 2.40 MG, INTRAVENOUS
     Route: 042
     Dates: start: 20071004, end: 20071014
  2. DEXASON [Concomitant]
  3. MEXIDOLUM AMPOULE [Concomitant]
  4. ANALGIN (METAMIZOLE SODIUM) AMPOULE [Concomitant]
  5. DIMEDROLUM (DIPHENHYDRAMINE HYDROCHLORIDE) AMPOULE [Concomitant]
  6. RANITIDINE [Concomitant]

REACTIONS (3)
  - AORTIC CALCIFICATION [None]
  - PULMONARY HYPERTENSION [None]
  - RESPIRATORY FAILURE [None]
